FAERS Safety Report 4737401-8 (Version None)
Quarter: 2005Q3

REPORT INFORMATION
  Report Type: 
  Country: None (occurrence: None)
  Receive Date: 20050802
  Receipt Date: 20050728
  Transmission Date: 20060218
  Serious: No
  Sender: FDA-Public Use
  Company Number: 215707

PATIENT
  Age: 19 Year
  Sex: Male
  Weight: 22 kg

DRUGS (2)
  1. NUTROPIN AQ [Suspect]
     Indication: GROWTH RETARDATION
     Dosage: 1.5 MG, 6/WEEK, SUBCUTANEOUS
     Route: 058
     Dates: start: 20030111
  2. FERROUS SULFATE TAB [Concomitant]

REACTIONS (4)
  - CONDITION AGGRAVATED [None]
  - DIARRHOEA [None]
  - GASTROINTESTINAL DISORDER [None]
  - SERUM FERRITIN DECREASED [None]
